FAERS Safety Report 9641896 (Version 3)
Quarter: 2014Q2

REPORT INFORMATION
  Report Type: Spontaneous
  Country: US (occurrence: US)
  Receive Date: 20131023
  Receipt Date: 20140410
  Transmission Date: 20141212
  Serious: Yes (Hospitalization)
  Sender: FDA-Public Use
  Company Number: US-B.I. PHARMACEUTICALS,INC./RIDGEFIELD-2013-BI-33505BP

PATIENT
  Sex: Male
  Weight: 117.93 kg

DRUGS (15)
  1. PRADAXA [Suspect]
     Indication: ATRIAL FIBRILLATION
     Dosage: 300 MG
     Route: 065
     Dates: start: 201103, end: 2012
  2. CELEBREX [Concomitant]
     Route: 065
  3. TOPROL XL [Concomitant]
     Dosage: 25 MG
     Route: 065
  4. WARFARIN [Concomitant]
     Route: 065
  5. FAMOTIDINE [Concomitant]
     Route: 065
  6. TIKOSYN [Concomitant]
     Dosage: 0.5 MG
     Route: 065
  7. PAXIL [Concomitant]
     Dosage: 20 MG
     Route: 065
  8. PROTONIX [Concomitant]
     Dosage: 40 MG
     Route: 048
  9. FERROUS SULFATE [Concomitant]
     Dosage: 325 MG
     Route: 065
  10. FOLIC ACID [Concomitant]
     Dosage: 1 MG
     Route: 065
  11. VITAMIN C [Concomitant]
     Dosage: 500 MG
     Route: 048
  12. VITAMIN D [Concomitant]
     Dosage: 1000 U
     Route: 065
  13. ATIVAN [Concomitant]
     Indication: ANXIETY
     Route: 065
  14. LAXATIVE [Concomitant]
     Indication: CONSTIPATION
     Route: 065
  15. ULTRAM [Concomitant]
     Indication: PAIN
     Route: 065

REACTIONS (4)
  - Gastrointestinal haemorrhage [Unknown]
  - Rectal haemorrhage [Unknown]
  - Contusion [Unknown]
  - Anaemia [Unknown]
